FAERS Safety Report 7148848-7 (Version None)
Quarter: 2010Q4

REPORT INFORMATION
  Report Type: 
  Country: None (occurrence: None)
  Receive Date: 20101209
  Receipt Date: 20101129
  Transmission Date: 20110411
  Serious: Yes (Other)
  Sender: FDA-Public Use
  Company Number: PHHY2010CA81737

PATIENT
  Sex: Female

DRUGS (1)
  1. AFINITOR [Suspect]
     Dosage: UNK

REACTIONS (7)
  - ASTHENIA [None]
  - HAEMORRHAGE [None]
  - NAUSEA [None]
  - OESOPHAGEAL DISORDER [None]
  - OESOPHAGEAL IRRITATION [None]
  - PHARYNGITIS [None]
  - VOMITING [None]
